FAERS Safety Report 10190362 (Version 2)
Quarter: 2014Q2

REPORT INFORMATION
  Report Type: Spontaneous
  Country: PT (occurrence: PT)
  Receive Date: 20140522
  Receipt Date: 20140606
  Transmission Date: 20141212
  Serious: Yes (Death, Other)
  Sender: FDA-Public Use
  Company Number: PT-JNJFOC-20140511761

PATIENT
  Sex: Female
  Weight: 40 kg

DRUGS (5)
  1. XARELTO [Suspect]
     Indication: EMBOLISM VENOUS
     Route: 048
     Dates: start: 201403, end: 20140415
  2. ACETYL SALICYLIC ACID [Concomitant]
     Route: 065
     Dates: end: 20140416
  3. ADALGUR [Concomitant]
     Route: 065
  4. MULTIVITAMINS [Concomitant]
     Route: 065
  5. HEPARIN [Concomitant]
     Route: 065
     Dates: start: 20140415, end: 20140415

REACTIONS (1)
  - Subarachnoid haemorrhage [Fatal]
